FAERS Safety Report 6446950-6 (Version None)
Quarter: 2009Q4

REPORT INFORMATION
  Report Type: 
  Country: None (occurrence: None)
  Receive Date: 20091119
  Receipt Date: 20091111
  Transmission Date: 20100525
  Serious: Yes (Hospitalization)
  Sender: FDA-Public Use
  Company Number: US-B.I. PHARMACEUTICALS,INC./RIDGEFIELD-2009-BP-10426BP

PATIENT
  Sex: Female
  Weight: 53.07 kg

DRUGS (14)
  1. ZANTAC 150 [Suspect]
     Indication: DYSPEPSIA
     Route: 048
     Dates: start: 20090701
  2. ZANTAC 150 [Suspect]
     Dosage: 300 MG
     Route: 048
     Dates: start: 20090806, end: 20090829
  3. INDERAL [Concomitant]
     Indication: MITRAL VALVE PROLAPSE
     Dosage: 40 MG
  4. INDERAL [Concomitant]
     Indication: TACHYCARDIA
  5. PLAVIX [Concomitant]
     Indication: TRANSIENT ISCHAEMIC ATTACK
     Dosage: 75 MG
  6. PLAVIX [Concomitant]
     Indication: CEREBROVASCULAR ACCIDENT PROPHYLAXIS
  7. GENERIC OTC CLARITIN [Concomitant]
  8. CENTRUM [Concomitant]
  9. VITAMIN D [Concomitant]
  10. FISH OIL [Concomitant]
  11. ASPIRIN [Concomitant]
     Dosage: 162 MG
  12. ALPHA-LIPOIC ACID [Concomitant]
  13. GINGER [Concomitant]
  14. CINNAMON [Concomitant]

REACTIONS (20)
  - BACK PAIN [None]
  - CHEST PAIN [None]
  - DYSPNOEA [None]
  - EYE PRURITUS [None]
  - FEELING ABNORMAL [None]
  - GLOSSODYNIA [None]
  - HEART RATE IRREGULAR [None]
  - HYPERSENSITIVITY [None]
  - HYPOAESTHESIA ORAL [None]
  - MITRAL VALVE INCOMPETENCE [None]
  - OESOPHAGEAL PAIN [None]
  - ORAL PRURITUS [None]
  - OROPHARYNGEAL PAIN [None]
  - PAIN IN EXTREMITY [None]
  - PAIN IN JAW [None]
  - PERICARDIAL DISEASE [None]
  - PERICARDIAL EFFUSION [None]
  - PRURITUS [None]
  - SUPRAVENTRICULAR TACHYCARDIA [None]
  - THROAT IRRITATION [None]
